FAERS Safety Report 20495853 (Version 2)
Quarter: 2022Q1

REPORT INFORMATION
  Report Type: Report from Study
  Country: CO (occurrence: CO)
  Receive Date: 20220221
  Receipt Date: 20220322
  Transmission Date: 20220424
  Serious: Yes (Life-Threatening, Other)
  Sender: FDA-Public Use
  Company Number: CO-NOVARTISPH-NVSC2022CO003524

PATIENT
  Age: 54 Year
  Sex: Female

DRUGS (2)
  1. ELTROMBOPAG OLAMINE [Suspect]
     Active Substance: ELTROMBOPAG OLAMINE
     Indication: Immune thrombocytopenia
     Dosage: 50 MG, QD
     Route: 048
     Dates: start: 20191118
  2. ELTROMBOPAG OLAMINE [Suspect]
     Active Substance: ELTROMBOPAG OLAMINE
     Dosage: 100 MG, QD (2 OF 50 MG)
     Route: 048

REACTIONS (4)
  - Platelet count decreased [Unknown]
  - Thrombosis [Unknown]
  - Gingival bleeding [Unknown]
  - Off label use [Unknown]

NARRATIVE: CASE EVENT DATE: 20200101
